FAERS Safety Report 5551269-1 (Version None)
Quarter: 2007Q4

REPORT INFORMATION
  Report Type: 
  Country: None (occurrence: None)
  Receive Date: 20071128
  Receipt Date: 20061004
  Transmission Date: 20080405
  Serious: Yes (Other)
  Sender: FDA-Public Use
  Company Number: 2006111249

PATIENT
  Age: 40 Year
  Sex: Female
  Weight: 73.4827 kg

DRUGS (3)
  1. LIPITOR [Suspect]
     Indication: HYPERLIPIDAEMIA
     Dosage: (40 MG)
  2. COUMADIN [Concomitant]
  3. PLAVIX [Concomitant]

REACTIONS (2)
  - BACK PAIN [None]
  - HEADACHE [None]
